FAERS Safety Report 6000099-5 (Version None)
Quarter: 2008Q4

REPORT INFORMATION
  Report Type: 
  Country: None (occurrence: None)
  Receive Date: 20081215
  Receipt Date: 20081209
  Transmission Date: 20090506
  Serious: Yes (Disabling)
  Sender: FDA-Public Use
  Company Number: B0550212A

PATIENT
  Age: 48 Year
  Sex: Female

DRUGS (1)
  1. SERETIDE [Suspect]
     Indication: DRUG USE FOR UNKNOWN INDICATION
     Route: 065
     Dates: start: 20080601, end: 20081021

REACTIONS (2)
  - DYSPNOEA [None]
  - PNEUMONIA [None]
